FAERS Safety Report 22141624 (Version 2)
Quarter: 2024Q1

REPORT INFORMATION
  Report Type: Spontaneous
  Country: US (occurrence: US)
  Receive Date: 20230327
  Receipt Date: 20240212
  Transmission Date: 20240410
  Serious: No
  Sender: FDA-Public Use
  Company Number: US-PFIZER INC-PV202300036370

PATIENT
  Age: 78 Year
  Sex: Female
  Weight: 88.889 kg

DRUGS (2)
  1. VYNDAMAX [Suspect]
     Active Substance: TAFAMIDIS
     Indication: Cardiac amyloidosis
     Dosage: 61 MG
  2. VYNDAMAX [Suspect]
     Active Substance: TAFAMIDIS
     Indication: Amyloidosis

REACTIONS (4)
  - Dyspnoea [Recovering/Resolving]
  - Dizziness [Recovering/Resolving]
  - Malaise [Unknown]
  - Stress [Unknown]
